FAERS Safety Report 18216839 (Version 1)
Quarter: 2020Q3

REPORT INFORMATION
  Report Type: Spontaneous
  Country: FR (occurrence: FR)
  Receive Date: 20200901
  Receipt Date: 20200901
  Transmission Date: 20201103
  Serious: Yes (Hospitalization)
  Sender: FDA-Public Use
  Company Number: FR-ACCORD-198539

PATIENT
  Age: 45 Year
  Sex: Male
  Weight: 70 kg

DRUGS (5)
  1. ESCITALOPRAM [Suspect]
     Active Substance: ESCITALOPRAM OXALATE
     Indication: DEPRESSIVE SYMPTOM
     Route: 048
     Dates: start: 202003
  2. PROTEINS NOS [Concomitant]
     Active Substance: PROTEIN
     Dosage: HYDROLYSATE
  3. PREGABALIN. [Concomitant]
     Active Substance: PREGABALIN
  4. LOXAPAC [Suspect]
     Active Substance: LOXAPINE
     Indication: MENTAL DISORDER
     Dosage: STRENGTH: 25 MG
     Route: 048
     Dates: start: 20200716
  5. SKENAN L.P [Concomitant]
     Active Substance: MORPHINE SULFATE
     Dosage: STRENGTH: 10 MG, MICROGRANULES PROLONGED?RELEASE CAPSULE

REACTIONS (1)
  - Reversible cerebral vasoconstriction syndrome [Recovered/Resolved]

NARRATIVE: CASE EVENT DATE: 20200803
